FAERS Safety Report 4932935-5 (Version None)
Quarter: 2006Q1

REPORT INFORMATION
  Report Type: 
  Country: None (occurrence: None)
  Receive Date: 20060301
  Receipt Date: 20060301
  Transmission Date: 20060701
  Serious: Yes (Hospitalization, Disabling)
  Sender: FDA-Public Use
  Company Number: None

PATIENT
  Sex: Female

DRUGS (1)
  1. PROMETHAZINE [Suspect]
     Dosage: 25 MG IV
     Route: 042

REACTIONS (3)
  - ANXIETY [None]
  - HEART RATE INCREASED [None]
  - RESTLESSNESS [None]
